FAERS Safety Report 25172891 (Version 5)
Quarter: 2025Q4

REPORT INFORMATION
  Report Type: Spontaneous
  Country: US (occurrence: US)
  Receive Date: 20250408
  Receipt Date: 20251001
  Transmission Date: 20260117
  Serious: No
  Sender: SYNDAX
  Company Number: US-SYNDAX PHARMACEUTICALS, INC.-2025US000312

PATIENT
  Sex: Female
  Weight: 86.086 kg

DRUGS (4)
  1. REVUFORJ [Suspect]
     Active Substance: REVUMENIB CITRATE
     Indication: Leukaemia
     Dosage: 160 MILLIGRAM, BID
     Route: 048
     Dates: start: 20241221
  2. REVUFORJ [Suspect]
     Active Substance: REVUMENIB CITRATE
     Dosage: 110 MILLIGRAM, BID
     Route: 048
     Dates: start: 20241221
  3. VENCLEXTA [Concomitant]
     Active Substance: VENETOCLAX
     Indication: Leukaemia
     Dosage: 200 MILLIGRAM, DAILY
     Route: 048
     Dates: start: 20241221
  4. VENCLEXTA [Concomitant]
     Active Substance: VENETOCLAX
     Dosage: 400 MILLIGRAM, DAILY
     Route: 048

REACTIONS (7)
  - Neutrophil count decreased [Unknown]
  - Vital functions abnormal [Unknown]
  - Platelet count decreased [Unknown]
  - Full blood count abnormal [Unknown]
  - Full blood count decreased [Unknown]
  - Off label use [Unknown]
  - Product packaging quantity issue [Unknown]
